FAERS Safety Report 8415395-1 (Version None)
Quarter: 2012Q2

REPORT INFORMATION
  Report Type: 
  Country: None (occurrence: None)
  Receive Date: 20120606
  Receipt Date: 20120601
  Transmission Date: 20120825
  Serious: Yes (Death, Hospitalization, Other)
  Sender: FDA-Public Use
  Company Number: PHHY2010CA45749

PATIENT
  Sex: Male

DRUGS (6)
  1. SANDOSTATIN LAR [Suspect]
     Indication: CARCINOID SYNDROME
     Dosage: 60 MG, BIW
     Route: 030
     Dates: start: 20061001
  2. FENTANYL [Concomitant]
     Dosage: UNK UKN, UNK
  3. GLICLAZIDE [Concomitant]
     Dosage: 30 MG DAILY
  4. DILAUDID [Concomitant]
     Dosage: 04 MG, QID
  5. MORPHINE [Concomitant]
     Dosage: UNK UKN, UNK
  6. FENTANYL [Concomitant]
     Dosage: 25 UG PER HOUR FOR A TOTAL OF 225 MCG/ HOUR Q2HRS

REACTIONS (14)
  - DEHYDRATION [None]
  - FLATULENCE [None]
  - NEOPLASM MALIGNANT [None]
  - VOMITING [None]
  - HEADACHE [None]
  - PAIN [None]
  - ORTHOPNOEA [None]
  - NAUSEA [None]
  - INJECTION SITE MASS [None]
  - DYSPNOEA [None]
  - POOR QUALITY SLEEP [None]
  - COUGH [None]
  - DIARRHOEA [None]
  - ASTHENIA [None]
